FAERS Safety Report 5463778-4 (Version None)
Quarter: 2007Q3

REPORT INFORMATION
  Report Type: 
  Country: None (occurrence: None)
  Receive Date: 20070919
  Receipt Date: 20070905
  Transmission Date: 20080115
  Serious: Yes (Hospitalization)
  Sender: FDA-Public Use
  Company Number: 2007BI017061

PATIENT
  Age: 61 Year
  Sex: Female

DRUGS (15)
  1. NATALIZUMAB [Suspect]
     Indication: MULTIPLE SCLEROSIS
     Dosage: 300 MG; QM; IV
     Route: 042
     Dates: start: 20070709, end: 20070807
  2. COUMADIN [Concomitant]
  3. ALBUTEROL [Concomitant]
  4. ATROVENT [Concomitant]
  5. TYLENOL (CAPLET) [Concomitant]
  6. LORTAB [Concomitant]
  7. BACLOFEN [Concomitant]
  8. CALCIUM CARBONATE WITH VITAMIN D [Concomitant]
  9. OMNICEF [Concomitant]
  10. FERROUS SULFATE TAB [Concomitant]
  11. PROZAC [Concomitant]
  12. DIOVAN [Concomitant]
  13. MILK OF MAGNESIA [Concomitant]
  14. MYLANTA [Concomitant]
  15. DULCOLAX [Concomitant]

REACTIONS (10)
  - ENCEPHALOPATHY [None]
  - HYPERTENSION [None]
  - IMMOBILE [None]
  - LOSS OF CONSCIOUSNESS [None]
  - PROTEUS INFECTION [None]
  - PULMONARY OEDEMA [None]
  - RENAL FAILURE ACUTE [None]
  - SEPTIC SHOCK [None]
  - URINARY TRACT INFECTION [None]
  - URINARY TRACT INFECTION ENTEROCOCCAL [None]
